FAERS Safety Report 5239584-2 (Version None)
Quarter: 2007Q1

REPORT INFORMATION
  Report Type: 
  Country: None (occurrence: None)
  Receive Date: 20070216
  Receipt Date: 20070208
  Transmission Date: 20070707
  Serious: Yes (Other)
  Sender: FDA-Public Use
  Company Number: 2006SE05516

PATIENT
  Age: 20327 Day
  Sex: Male
  Weight: 72.5 kg

DRUGS (3)
  1. CRESTOR [Suspect]
     Indication: TYPE IIA HYPERLIPIDAEMIA
     Route: 048
     Dates: start: 20060920, end: 20061027
  2. GLUCOPHAGE [Concomitant]
     Indication: INSULIN RESISTANCE
     Route: 048
     Dates: start: 20050201
  3. ASPIRIN [Concomitant]
     Indication: PROPHYLAXIS
     Route: 048
     Dates: start: 20050201, end: 20061027

REACTIONS (1)
  - EJACULATION FAILURE [None]
